FAERS Safety Report 8827716 (Version 1)
Quarter: 2012Q4

REPORT INFORMATION
  Report Type: 
  Country: GB (occurrence: GB)
  Receive Date: 20121005
  Receipt Date: 20121005
  Transmission Date: 20130627
  Serious: Yes (Other)
  Sender: FDA-Public Use
  Company Number: GB-ROCHE-1141077

PATIENT
  Age: 29 Year
  Sex: Female
  Weight: 92.4 kg

DRUGS (2)
  1. XOLAIR [Suspect]
     Indication: PRODUCT USED FOR UNKNOWN INDICATION
     Route: 058
     Dates: start: 20101118, end: 20120511
  2. PREDNISONE [Concomitant]
     Indication: ASTHMA
     Dosage: variable dose 5 mg - 40 mg
     Route: 065

REACTIONS (4)
  - Abortion spontaneous [Unknown]
  - Asthma [Unknown]
  - Malaise [Unknown]
  - Exposure during pregnancy [Unknown]
